FAERS Safety Report 15894004 (Version 2)
Quarter: 2019Q1

REPORT INFORMATION
  Report Type: Spontaneous
  Country: RO (occurrence: RO)
  Receive Date: 20190131
  Receipt Date: 20190214
  Transmission Date: 20190417
  Serious: Yes (Other)
  Sender: FDA-Public Use
  Company Number: RO-SAKK-2019SA019545AA

PATIENT
  Age: 19 Year
  Sex: Female

DRUGS (5)
  1. ACTRAPID [Concomitant]
     Active Substance: INSULIN HUMAN
     Dosage: 10 DF, TID
  2. LANTUS [Suspect]
     Active Substance: INSULIN GLARGINE
     Dosage: 28 UNK
  3. ACTRAPID [Concomitant]
     Active Substance: INSULIN HUMAN
     Indication: TYPE 1 DIABETES MELLITUS
     Dosage: 18 IU IN THE MORNING, 16 IU AT NOON, 12 IU IN THE EVENING
     Route: 065
  4. LANTUS [Suspect]
     Active Substance: INSULIN GLARGINE
     Indication: TYPE 1 DIABETES MELLITUS
     Dosage: 40 IU IN TH EVENING
     Route: 065
  5. LANTUS [Suspect]
     Active Substance: INSULIN GLARGINE
     Dosage: 30 UNK

REACTIONS (2)
  - Polyneuropathy [Unknown]
  - Hypoglycaemia [Recovered/Resolved]

NARRATIVE: CASE EVENT DATE: 20070619
